FAERS Safety Report 4563393-0 (Version None)
Quarter: 2005Q1

REPORT INFORMATION
  Report Type: 
  Country: None (occurrence: None)
  Receive Date: 20050128
  Receipt Date: 20040329
  Transmission Date: 20050727
  Serious: No
  Sender: FDA-Public Use
  Company Number: US-GLAXOSMITHKLINE-A0504864A

PATIENT
  Age: 46 Year
  Sex: Female

DRUGS (2)
  1. WELLBUTRIN [Suspect]
     Dosage: 300MG PER DAY
     Route: 048
     Dates: start: 20001101, end: 20001101
  2. ADDERALL 5 [Concomitant]

REACTIONS (2)
  - DYSPNOEA [None]
  - RASH [None]
